FAERS Safety Report 4804581-5 (Version None)
Quarter: 2005Q4

REPORT INFORMATION
  Report Type: 
  Country: None (occurrence: None)
  Receive Date: 20051017
  Receipt Date: 20051010
  Transmission Date: 20060501
  Serious: Yes (Hospitalization)
  Sender: FDA-Public Use
  Company Number: 2005140168

PATIENT
  Age: 85 Year
  Sex: Female
  Weight: 62 kg

DRUGS (10)
  1. ZOLOFT [Suspect]
     Indication: DEPRESSION
     Dosage: 50 MG (1 IN 1 D), ORAL
     Route: 048
     Dates: start: 20050819, end: 20050821
  2. PAROXETINE HYDROCHLORIDE [Suspect]
     Indication: DEPRESSION
     Dosage: 10 MG(1 IN1 D), ORAL
     Route: 048
     Dates: start: 20050525, end: 20050819
  3. CALCIUM CARBONATE (CALCIUM CARBONATE) [Concomitant]
  4. ACETYLSALICYLATE LYSINE (ACETYLSALICYLATE LYSINE) [Concomitant]
  5. RILMENIDIEN (RILMENIDINE) [Concomitant]
  6. IRBESARTAN [Concomitant]
  7. CLORAZEPATE (CLORAZEPATE DIPOTASSIUM) [Concomitant]
  8. RUTOSIDE (RUTOSIDE0 [Concomitant]
  9. SIMETICONE (SIMETICONE) [Concomitant]
  10. ACETAMINOPHEN W/ PROPOXYPHENE HCL [Concomitant]

REACTIONS (7)
  - ANXIETY [None]
  - BALANCE DISORDER [None]
  - CONDITION AGGRAVATED [None]
  - DYSPNOEA [None]
  - DYSSTASIA [None]
  - HYPONATRAEMIA [None]
  - MALAISE [None]
